FAERS Safety Report 13901118 (Version 2)
Quarter: 2017Q3

REPORT INFORMATION
  Report Type: Spontaneous
  Country: US (occurrence: US)
  Receive Date: 20170824
  Receipt Date: 20170831
  Transmission Date: 20171127
  Serious: No
  Sender: FDA-Public Use
  Company Number: US-B.I. PHARMACEUTICALS,INC./RIDGEFIELD-2017-BI-045940

PATIENT

DRUGS (1)
  1. MICARDIS HCT [Suspect]
     Active Substance: HYDROCHLOROTHIAZIDE\TELMISARTAN
     Indication: BLOOD PRESSURE ABNORMAL
     Dosage: STRENGTH: 12.5MG/40MG
     Route: 065
     Dates: start: 20170704

REACTIONS (6)
  - Hypertension [Not Recovered/Not Resolved]
  - Headache [Unknown]
  - Capillary fragility [Unknown]
  - Drug ineffective [Unknown]
  - Product quality issue [Unknown]
  - Blood pressure increased [Not Recovered/Not Resolved]

NARRATIVE: CASE EVENT DATE: 20170717
